FAERS Safety Report 12837822 (Version 2)
Quarter: 2017Q2

REPORT INFORMATION
  Report Type: Spontaneous
  Country: US (occurrence: US)
  Receive Date: 20161012
  Receipt Date: 20170606
  Transmission Date: 20170830
  Serious: Yes (Death, Other)
  Sender: FDA-Public Use
  Company Number: US-BRISTOL-MYERS SQUIBB COMPANY-BMS-2016-083004

PATIENT
  Sex: Male

DRUGS (1)
  1. OPDIVO [Suspect]
     Active Substance: NIVOLUMAB
     Indication: LUNG NEOPLASM MALIGNANT
     Route: 042

REACTIONS (8)
  - Lung neoplasm [Unknown]
  - Respiratory disorder [Unknown]
  - Peripheral swelling [Unknown]
  - Chills [Unknown]
  - Rash [Unknown]
  - Renal failure [Unknown]
  - Tremor [Unknown]
  - Death [Fatal]
